FAERS Safety Report 8148005-1 (Version None)
Quarter: 2012Q1

REPORT INFORMATION
  Report Type: 
  Country: None (occurrence: None)
  Receive Date: 20120218
  Receipt Date: 20110504
  Transmission Date: 20120608
  Serious: No
  Sender: FDA-Public Use
  Company Number: US-ALLERGAN-1104784US

PATIENT
  Age: 64 Year
  Sex: Female
  Weight: 54.422 kg

DRUGS (1)
  1. BOTOX COSMETIC [Suspect]
     Indication: SKIN WRINKLING
     Dosage: 45 UNITS, SINGLE
     Route: 030
     Dates: start: 20110217, end: 20110217

REACTIONS (4)
  - FACIAL PARESIS [None]
  - SKIN HAEMORRHAGE [None]
  - VIITH NERVE PARALYSIS [None]
  - CONTUSION [None]
